FAERS Safety Report 5071820-8 (Version None)
Quarter: 2006Q3

REPORT INFORMATION
  Report Type: 
  Country: None (occurrence: None)
  Receive Date: 20060801
  Receipt Date: 20060724
  Transmission Date: 20061208
  Serious: Yes (Death)
  Sender: FDA-Public Use
  Company Number: US200604002337

PATIENT
  Sex: Female
  Weight: 55.8 kg

DRUGS (4)
  1. ZYPREXA [Suspect]
     Dosage: 7.5 MG; 10 MG
     Dates: start: 20031118, end: 20031201
  2. ZYPREXA [Suspect]
     Dosage: 7.5 MG; 10 MG
     Dates: start: 19990105, end: 20031203
  3. LEVOFLOXACIN [Concomitant]
  4. CELEBREX [Concomitant]

REACTIONS (1)
  - DIABETES MELLITUS [None]
